FAERS Safety Report 6327926-6 (Version None)
Quarter: 2009Q3

REPORT INFORMATION
  Report Type: 
  Country: None (occurrence: None)
  Receive Date: 20090824
  Receipt Date: 20090813
  Transmission Date: 20100115
  Serious: Yes (Hospitalization)
  Sender: FDA-Public Use
  Company Number: GXKR2009GB09169

PATIENT
  Age: 50 Year
  Sex: Female

DRUGS (2)
  1. METRONIDAZOLE [Suspect]
     Indication: PELVIC INFECTION
     Dosage: 400 MG, ORAL
     Route: 048
     Dates: start: 20090319
  2. OFLOXACIN [Suspect]
     Indication: PELVIC INFECTION
     Dosage: 400 MG, ORAL
     Route: 048
     Dates: start: 20090319

REACTIONS (1)
  - ANAPHYLACTIC REACTION [None]
